FAERS Safety Report 9293157 (Version 1)
Quarter: 2013Q2

REPORT INFORMATION
  Report Type: Spontaneous
  Country: JP (occurrence: None)
  Receive Date: 20130514
  Receipt Date: 20130514
  Transmission Date: 20140414
  Serious: Yes (Life-Threatening)
  Sender: FDA-Public Use
  Company Number: TCI2013A00471

PATIENT
  Age: 76 Year
  Sex: Female

DRUGS (3)
  1. LANSAP [Suspect]
     Indication: HELICOBACTER INFECTION
     Dosage: (0.5 CARD, 2 IN 1 D)
     Route: 048
     Dates: start: 20121110, end: 20121115
  2. AMLODIN ( AMLODI PINE BESILATE) [Concomitant]
  3. LIPITOR(ATORVASTATIN CALCIUM) [Concomitant]

REACTIONS (2)
  - Respiratory tract oedema [None]
  - Face oedema [None]
